FAERS Safety Report 9058983 (Version 1)
Quarter: 2013Q1

REPORT INFORMATION
  Report Type: Spontaneous
  Country: US (occurrence: US)
  Receive Date: 20130211
  Receipt Date: 20130211
  Transmission Date: 20140127
  Serious: No
  Sender: FDA-Public Use
  Company Number: US-BRISTOL-MYERS SQUIBB COMPANY-16499865

PATIENT
  Age: 65 Year
  Sex: Male

DRUGS (6)
  1. METFORMIN HCL TABS [Suspect]
     Indication: TYPE 2 DIABETES MELLITUS
     Route: 048
  2. LANTUS [Suspect]
     Indication: TYPE 2 DIABETES MELLITUS
     Dosage: DOSE-10UNITS NOS AT BEDTIME,SC(UNK-UNK,FEB12-MAR12)
     Route: 058
     Dates: start: 201202, end: 201203
  3. AMARYL [Suspect]
     Dosage: TABS
     Route: 048
  4. RAMIPRIL [Suspect]
  5. JANUVIA [Suspect]
  6. GARLIC [Suspect]
     Dosage: PILLS

REACTIONS (4)
  - Weight decreased [Recovered/Resolved]
  - Pruritus [Not Recovered/Not Resolved]
  - Swelling [Not Recovered/Not Resolved]
  - Rash [Recovering/Resolving]
